FAERS Safety Report 19132253 (Version 2)
Quarter: 2021Q2

REPORT INFORMATION
  Report Type: Spontaneous
  Country: US (occurrence: US)
  Receive Date: 20210413
  Receipt Date: 20210606
  Transmission Date: 20210717
  Serious: Yes (Other)
  Sender: FDA-Public Use
  Company Number: US-TEVA-2021-US-1899810

PATIENT

DRUGS (6)
  1. VALSARTAN ? ALEMBIC PHARMA [Suspect]
     Active Substance: VALSARTAN
     Indication: HYPERTENSION
     Route: 065
     Dates: start: 20161018, end: 20180228
  2. VALSARTAN ? SOLCO HEALTHCARE [Suspect]
     Active Substance: VALSARTAN
     Indication: HYPERTENSION
     Route: 065
     Dates: start: 20180228, end: 20180825
  3. VALSARTAN ? OHM LABORATORIES [Suspect]
     Active Substance: VALSARTAN
     Indication: HYPERTENSION
     Route: 065
     Dates: start: 20150425, end: 20151026
  4. VALSARTAN HCTZ ? SANDOZ [Suspect]
     Active Substance: HYDROCHLOROTHIAZIDE\VALSARTAN
     Indication: HYPERTENSION
     Dosage: 160/12.5 MG
     Route: 065
     Dates: start: 20130415, end: 20140401
  5. VALSARTAN HCTZ ? AUROBINDO [Suspect]
     Active Substance: HYDROCHLOROTHIAZIDE\VALSARTAN
     Indication: HYPERTENSION
     Dosage: 160/12.5 MG
     Route: 065
     Dates: start: 20140401, end: 20150424
  6. VALSARTAN ? PAR PHARMA [Suspect]
     Active Substance: VALSARTAN
     Indication: HYPERTENSION
     Route: 065
     Dates: start: 20151026, end: 20161018

REACTIONS (1)
  - Oesophageal carcinoma [Unknown]
